FAERS Safety Report 22168644 (Version 2)
Quarter: 2024Q3

REPORT INFORMATION
  Report Type: Spontaneous
  Country: ZA (occurrence: ZA)
  Receive Date: 20230403
  Receipt Date: 20240903
  Transmission Date: 20241016
  Serious: Yes (Other)
  Sender: MYLAN
  Company Number: ZA-MYLANLABS-2023M1034216

PATIENT
  Sex: Male

DRUGS (9)
  1. CELEBREX [Suspect]
     Active Substance: CELECOXIB
     Indication: Psoriatic arthropathy
     Dosage: 200 MILLIGRAM, BID (200MG BD PO)
     Route: 048
     Dates: start: 202001
  2. METHOTREXATE [Concomitant]
     Active Substance: METHOTREXATE
     Indication: Psoriatic arthropathy
     Dosage: 15 MILLIGRAM, QW
     Route: 065
     Dates: start: 202001
  3. STELARA [Concomitant]
     Active Substance: USTEKINUMAB
     Indication: Psoriatic arthropathy
     Dosage: 45 MILLIGRAM (45MG WEEK 0, WEEK4 AND WEEK12)
     Route: 065
     Dates: start: 202010
  4. ARAVA [Concomitant]
     Active Substance: LEFLUNOMIDE
     Indication: Psoriatic arthropathy
     Dosage: 20 MILLIGRAM, QD
     Route: 065
     Dates: start: 202010
  5. ENBREL [Concomitant]
     Active Substance: BENZYL ALCOHOL\ETANERCEPT
     Dosage: 50 MILLIGRAM, QW (50MG SC WEEKLY)
     Route: 058
  6. VIMOVO [Concomitant]
     Active Substance: ESOMEPRAZOLE MAGNESIUM\NAPROXEN
     Dosage: 1 DOSAGE FORM, QD (1 TABLETS DLY PO)
     Route: 048
  7. FLUTICASONE FUROATE [Concomitant]
     Active Substance: FLUTICASONE FUROATE
     Dosage: UNK, QD (1 SPRAY DAILY)
     Route: 065
  8. XAILIN [Concomitant]
     Dosage: UNK (NOCTE IO)
     Route: 031
  9. DEXTRAN [Concomitant]
     Active Substance: DEXTRAN
     Dosage: UNK, TID (TDS IO)
     Route: 031

REACTIONS (3)
  - Immunodeficiency [Unknown]
  - Ankylosing spondylitis [Unknown]
  - Upper respiratory tract infection [Unknown]
